FAERS Safety Report 10259924 (Version 1)
Quarter: 2014Q2

REPORT INFORMATION
  Report Type: Spontaneous
  Country: DE (occurrence: DE)
  Receive Date: 20140625
  Receipt Date: 20140625
  Transmission Date: 20141212
  Serious: Yes (Death)
  Sender: FDA-Public Use
  Company Number: DE-GLAXOSMITHKLINE-D0084101A

PATIENT
  Age: 4 Year
  Sex: Male

DRUGS (1)
  1. FLUTIDE MITE [Suspect]
     Indication: ASTHMA
     Dosage: 1PUFF TWICE PER DAY
     Route: 055

REACTIONS (4)
  - Pneumonia [Fatal]
  - Treatment noncompliance [Unknown]
  - Child neglect [None]
  - Product quality issue [None]
